FAERS Safety Report 13947513 (Version 3)
Quarter: 2017Q4

REPORT INFORMATION
  Report Type: Report from Study
  Country: US (occurrence: US)
  Receive Date: 20170908
  Receipt Date: 20171027
  Transmission Date: 20180320
  Serious: No
  Sender: FDA-Public Use
  Company Number: US-AMGEN-USASL2017133703

PATIENT
  Age: 37 Year
  Sex: Female
  Weight: 116.55 kg

DRUGS (1)
  1. ENBREL [Suspect]
     Active Substance: ETANERCEPT
     Indication: RHEUMATOID ARTHRITIS
     Dosage: 50 MG, QWK
     Route: 065
     Dates: start: 20170831

REACTIONS (3)
  - Accidental exposure to product [Unknown]
  - Medication error [Unknown]
  - Underdose [Unknown]

NARRATIVE: CASE EVENT DATE: 2017
